FAERS Safety Report 6868079-5 (Version None)
Quarter: 2010Q2

REPORT INFORMATION
  Report Type: 
  Country: None (occurrence: None)
  Receive Date: 20100528
  Receipt Date: 20100222
  Transmission Date: 20101027
  Serious: No
  Sender: FDA-Public Use
  Company Number: 2010023609

PATIENT
  Sex: Male

DRUGS (1)
  1. TOVIAZ [Suspect]
     Indication: POLLAKIURIA
     Dosage: 4 MG, 1X/DAY, ORAL
     Route: 048
     Dates: start: 20100201

REACTIONS (2)
  - DRUG INEFFECTIVE [None]
  - INSOMNIA [None]
